FAERS Safety Report 19124215 (Version 1)
Quarter: 2021Q2

REPORT INFORMATION
  Report Type: Report from Study
  Country: US (occurrence: US)
  Receive Date: 20210412
  Receipt Date: 20210412
  Transmission Date: 20210717
  Serious: Yes (Other)
  Sender: FDA-Public Use
  Company Number: US-BAYER-2021-117253

PATIENT
  Age: 31 Year
  Sex: Male

DRUGS (1)
  1. NEXAVAR [Suspect]
     Active Substance: SORAFENIB
     Indication: DESMOID TUMOUR
     Dosage: DAILY DOSE 400 MG
     Route: 048
     Dates: start: 20200331, end: 202007

REACTIONS (3)
  - Off label use [None]
  - Hepatic failure [Unknown]
  - Product use in unapproved indication [None]
